FAERS Safety Report 9728276 (Version 1)
Quarter: 2013Q4

REPORT INFORMATION
  Report Type: Spontaneous
  Country: US (occurrence: None)
  Receive Date: 20131203
  Receipt Date: 20131203
  Transmission Date: 20140711
  Serious: Yes (Hospitalization)
  Sender: FDA-Public Use
  Company Number: None

PATIENT
  Age: 64 Year
  Sex: Male

DRUGS (3)
  1. HALOPERIDOL [Suspect]
     Indication: ABNORMAL BEHAVIOUR
     Dosage: OTHER
     Route: 048
     Dates: start: 20130321, end: 20130925
  2. HALOPERIDOL [Suspect]
     Indication: DEMENTIA
     Dosage: OTHER
     Route: 048
     Dates: start: 20130321, end: 20130925
  3. HALOPERIDOL [Suspect]
     Indication: INSOMNIA
     Dosage: OTHER
     Route: 048
     Dates: start: 20130321, end: 20130925

REACTIONS (6)
  - Parkinsonism [None]
  - Rhabdomyolysis [None]
  - Neuroleptic malignant syndrome [None]
  - Serotonin syndrome [None]
  - Normal pressure hydrocephalus [None]
  - Computerised tomogram head abnormal [None]
